FAERS Safety Report 8392479-8 (Version None)
Quarter: 2012Q2

REPORT INFORMATION
  Report Type: 
  Country: None (occurrence: None)
  Receive Date: 20120529
  Receipt Date: 20120523
  Transmission Date: 20120825
  Serious: No
  Sender: FDA-Public Use
  Company Number: US-PFIZER INC-2012125195

PATIENT
  Sex: Male
  Weight: 72.562 kg

DRUGS (2)
  1. ADVIL [Suspect]
     Dosage: 200 MG, 1X/DAY
     Route: 048
     Dates: start: 20120522, end: 20120522
  2. ADVIL [Suspect]
     Dosage: 200 MG, 1X/DAY
     Route: 048
     Dates: start: 20120501, end: 20120501

REACTIONS (3)
  - PRURITUS [None]
  - SKIN IRRITATION [None]
  - RASH ERYTHEMATOUS [None]
